FAERS Safety Report 16488741 (Version 1)
Quarter: 2019Q2

REPORT INFORMATION
  Report Type: Report from Study
  Country: US (occurrence: US)
  Receive Date: 20190627
  Receipt Date: 20190627
  Transmission Date: 20190711
  Serious: Yes (Death, Hospitalization)
  Sender: FDA-Public Use
  Company Number: US-ACTELION-A-US2019-191969

PATIENT
  Age: 80 Year
  Sex: Male
  Weight: 82.99 kg

DRUGS (2)
  1. UPTRAVI [Suspect]
     Active Substance: SELEXIPAG
     Indication: PULMONARY ARTERIAL HYPERTENSION
     Dosage: 400 MCG, BID
     Route: 048
     Dates: start: 20190617, end: 20190617
  2. UPTRAVI [Suspect]
     Active Substance: SELEXIPAG
     Dosage: 200 MCG, BID
     Route: 048
     Dates: end: 20190616

REACTIONS (8)
  - Cardiac arrest [Fatal]
  - Fatigue [Unknown]
  - Hypotension [Unknown]
  - Weight increased [Unknown]
  - Malaise [Fatal]
  - Asthenia [Unknown]
  - Musculoskeletal pain [Unknown]
  - Dyspnoea [Unknown]

NARRATIVE: CASE EVENT DATE: 20190618
